FAERS Safety Report 17145714 (Version 1)
Quarter: 2019Q4

REPORT INFORMATION
  Report Type: Report from Study
  Country: DE (occurrence: DE)
  Receive Date: 20191212
  Receipt Date: 20191212
  Transmission Date: 20200122
  Serious: Yes (Other)
  Sender: FDA-Public Use
  Company Number: DE-AMGEN-DEUNI2019204948

PATIENT
  Age: 63 Year
  Sex: Female
  Weight: 76 kg

DRUGS (13)
  1. FLUOROURACIL. [Suspect]
     Active Substance: FLUOROURACIL
     Dosage: 690 MILLIGRAM
     Route: 040
     Dates: start: 20190828
  2. FOLINIC ACID [Suspect]
     Active Substance: LEUCOVORIN
     Dosage: 340 MILLIGRAM
     Route: 065
     Dates: start: 20190828
  3. FLUOROURACIL. [Suspect]
     Active Substance: FLUOROURACIL
     Indication: COLORECTAL CANCER METASTATIC
     Dosage: 740 MILLIGRAM
     Route: 040
     Dates: start: 20190626
  4. FLUOROURACIL. [Suspect]
     Active Substance: FLUOROURACIL
     Dosage: 750 MILLIGRAM
     Route: 040
     Dates: start: 20190807
  5. PANITUMUMAB [Suspect]
     Active Substance: PANITUMUMAB
     Indication: COLORECTAL CANCER METASTATIC
     Dosage: 455 MILLIGRAM
     Route: 042
     Dates: start: 20190626
  6. FLUOROURACIL. [Suspect]
     Active Substance: FLUOROURACIL
     Dosage: 1130 MILLIGRAM
     Route: 042
     Dates: start: 20190626
  7. OXALIPLATIN. [Suspect]
     Active Substance: OXALIPLATIN
     Indication: COLORECTAL CANCER METASTATIC
     Dosage: 160 MILLIGRAM
     Route: 065
     Dates: start: 20190626
  8. OXALIPLATIN. [Suspect]
     Active Substance: OXALIPLATIN
     Dosage: 150 MILLIGRAM
     Route: 065
     Dates: start: 20190828
  9. FOLINIC ACID [Suspect]
     Active Substance: LEUCOVORIN
     Indication: COLORECTAL CANCER METASTATIC
     Dosage: 370 MILLIGRAM
     Route: 065
     Dates: start: 20190626
  10. FLUOROURACIL. [Suspect]
     Active Substance: FLUOROURACIL
     Dosage: 1020 MILLIGRAM
     Route: 042
     Dates: start: 20190828
  11. RAMIPRIL. [Concomitant]
     Active Substance: RAMIPRIL
     Dosage: UNK
     Dates: start: 20190528
  12. PANITUMUMAB [Suspect]
     Active Substance: PANITUMUMAB
     Dosage: 370 MILLIGRAM
     Route: 042
     Dates: start: 20190828
  13. FLUOROURACIL. [Suspect]
     Active Substance: FLUOROURACIL
     Dosage: 1120 MILLIGRAM
     Route: 042
     Dates: start: 20190807

REACTIONS (1)
  - Neutropenia [Recovered/Resolved]

NARRATIVE: CASE EVENT DATE: 20190821
